FAERS Safety Report 17097013 (Version 1)
Quarter: 2019Q4

REPORT INFORMATION
  Report Type: Spontaneous
  Country: US (occurrence: US)
  Receive Date: 20191104
  Receipt Date: 20191104
  Transmission Date: 20200122
  Serious: Yes (Other)
  Sender: FDA-Public Use
  Company Number: None

PATIENT
  Age: 61 Year
  Sex: Female
  Weight: 72.57 kg

DRUGS (1)
  1. EFFER-K 20 MEQ ORANGE CREAM [Suspect]
     Active Substance: POTASSIUM BICARBONATE
     Indication: FAMILIAL PERIODIC PARALYSIS
     Dosage: ?          QUANTITY:20 MEQ MILLIEQUIVALENT(S);OTHER FREQUENCY:5 TIMES A DAILY;?
     Route: 048
     Dates: start: 20191030, end: 20191031

REACTIONS (2)
  - Product supply issue [None]
  - Product prescribing issue [None]
